FAERS Safety Report 14593080 (Version 1)
Quarter: 2018Q1

REPORT INFORMATION
  Report Type: Spontaneous
  Country: US (occurrence: US)
  Receive Date: 20180302
  Receipt Date: 20180302
  Transmission Date: 20180509
  Serious: No
  Sender: FDA-Public Use
  Company Number: US-ENDO PHARMACEUTICALS INC-2018-014373

PATIENT
  Sex: Male
  Weight: 113.38 kg

DRUGS (2)
  1. XIAFLEX [Suspect]
     Active Substance: COLLAGENASE CLOSTRIDIUM HISTOLYTICUM
     Indication: DUPUYTREN^S CONTRACTURE
     Dosage: 4 INJECTIONS OF XIAFLEX IN RIGHT HAND
     Route: 026
     Dates: start: 2011, end: 2011
  2. XIAFLEX [Suspect]
     Active Substance: COLLAGENASE CLOSTRIDIUM HISTOLYTICUM
     Dosage: FIVE XIAFLEX INJECTIONS IN LEFT HAND, DIGITS 4 AND 5, 1 FAILED NEEDLE RELEASE
     Route: 026
     Dates: start: 2013, end: 2013

REACTIONS (5)
  - Laceration [Unknown]
  - Drug ineffective [Not Recovered/Not Resolved]
  - Burning sensation [Recovered/Resolved]
  - Blood blister [Unknown]
  - Skin disorder [Not Recovered/Not Resolved]

NARRATIVE: CASE EVENT DATE: 2011
